FAERS Safety Report 5727940-5 (Version None)
Quarter: 2008Q2

REPORT INFORMATION
  Report Type: 
  Country: None (occurrence: None)
  Receive Date: 20080430
  Receipt Date: 20080222
  Transmission Date: 20081010
  Serious: No
  Sender: FDA-Public Use
  Company Number: 2008PV034355

PATIENT
  Age: 48 Year
  Sex: Male

DRUGS (6)
  1. SYMLIN [Suspect]
     Indication: TYPE 2 DIABETES MELLITUS
     Dosage: 120 MCG;TID;SC : 60 MCG;TID;SC
     Route: 058
     Dates: start: 20060101, end: 20060101
  2. SYMLIN [Suspect]
     Indication: TYPE 2 DIABETES MELLITUS
     Dosage: 120 MCG;TID;SC : 60 MCG;TID;SC
     Route: 058
     Dates: start: 20060101
  3. INSULIN DETEMIR [Concomitant]
  4. HUMALOG 100 [Concomitant]
  5. 75/25/INSULIN MIX [Concomitant]
  6. ACTOS [Concomitant]

REACTIONS (1)
  - BLOOD GLUCOSE DECREASED [None]
